FAERS Safety Report 8217772-0 (Version None)
Quarter: 2012Q1

REPORT INFORMATION
  Report Type: 
  Country: None (occurrence: None)
  Receive Date: 20120319
  Receipt Date: 20120307
  Transmission Date: 20120608
  Serious: Yes (Other)
  Sender: FDA-Public Use
  Company Number: GB-JNJFOC-20120304347

PATIENT
  Sex: Female

DRUGS (1)
  1. IMODIUM [Suspect]
     Indication: IRRITABLE BOWEL SYNDROME
     Route: 065

REACTIONS (2)
  - IRRITABLE BOWEL SYNDROME [None]
  - DEPRESSION [None]
